FAERS Safety Report 5238782-1 (Version None)
Quarter: 2007Q1

REPORT INFORMATION
  Report Type: 
  Country: None (occurrence: None)
  Receive Date: 20070215
  Receipt Date: 20070205
  Transmission Date: 20070707
  Serious: Yes (Hospitalization)
  Sender: FDA-Public Use
  Company Number: GB-PFIZER INC-2006026571

PATIENT
  Age: 51 Year
  Sex: Female

DRUGS (20)
  1. FLUCONAZOLE [Suspect]
     Indication: ILL-DEFINED DISORDER
     Dosage: TEXT:UNKNOWN-FREQ:UNKNOWN
     Route: 065
  2. HYDROCORTISONE [Suspect]
     Indication: ILL-DEFINED DISORDER
     Dosage: TEXT:UNKNOWN-FREQ:UNKNOWN
     Route: 065
  3. VALPROATE SODIUM [Suspect]
     Indication: ILL-DEFINED DISORDER
     Dosage: TEXT:UNKNOWN-FREQ:UNKNOWN
     Route: 065
  4. LEVOTHYROXINE SODIUM [Suspect]
     Indication: ILL-DEFINED DISORDER
     Dosage: TEXT:UNKNOWN-FREQ:UNKNOWN
     Route: 065
  5. CLOZAPINE [Suspect]
     Indication: ILL-DEFINED DISORDER
     Dosage: TEXT:UNKNOWN-FREQ:UNKNOWN
     Route: 065
     Dates: start: 19920615, end: 20050525
  6. CLOZAPINE [Suspect]
     Dosage: TEXT:UNKNOWN-FREQ:UNKNOWN
     Route: 048
  7. CIPROFLOXACIN HCL [Suspect]
     Indication: ILL-DEFINED DISORDER
     Dosage: TEXT:UNKNOWN-FREQ:UNKNOWN
     Route: 065
  8. RANITIDINE HYDROCHLORIDE [Suspect]
     Indication: ILL-DEFINED DISORDER
     Route: 065
  9. FENTANYL [Suspect]
     Indication: ILL-DEFINED DISORDER
     Route: 065
  10. PARACETAMOL [Suspect]
     Indication: ILL-DEFINED DISORDER
     Route: 065
  11. AMISULPRIDE [Concomitant]
     Route: 065
  12. LITHIUM CARBONATE [Concomitant]
     Route: 065
  13. LACTULOSE [Concomitant]
     Route: 065
  14. MIDAZOLAM HCL [Concomitant]
     Route: 065
  15. PROPOFOL [Concomitant]
     Route: 065
  16. NOREPINEPHRINE BITARTRATE [Concomitant]
     Route: 065
  17. POTASSIUM ACETATE [Concomitant]
     Route: 065
  18. INSULIN [Concomitant]
     Route: 065
  19. HEPARIN [Concomitant]
     Route: 065
  20. ENOXAPARIN SODIUM [Concomitant]
     Route: 065

REACTIONS (1)
  - LOSS OF CONSCIOUSNESS [None]
